FAERS Safety Report 5384244-0 (Version None)
Quarter: 2007Q3

REPORT INFORMATION
  Report Type: 
  Country: None (occurrence: None)
  Receive Date: 20070703
  Receipt Date: 20061011
  Transmission Date: 20080115
  Serious: Yes (Hospitalization)
  Sender: FDA-Public Use
  Company Number: 2006-BP-02485BP

PATIENT
  Age: 44 Year
  Sex: Male

DRUGS (6)
  1. MIRAPEX [Suspect]
     Indication: PARKINSON'S DISEASE
     Dosage: SEE IMAGE
     Route: 048
     Dates: start: 20010901, end: 20060101
  2. SINEMET [Concomitant]
  3. COMTAN [Concomitant]
  4. SEROQUEL [Concomitant]
  5. SELEGILINE (SELEGILINE) [Concomitant]
  6. PERGOLIDE (PERGOLIDE) [Concomitant]

REACTIONS (5)
  - DEPRESSION [None]
  - LIBIDO INCREASED [None]
  - OBSESSIVE-COMPULSIVE DISORDER [None]
  - PATHOLOGICAL GAMBLING [None]
  - PSYCHOTIC DISORDER [None]
